FAERS Safety Report 25532835 (Version 1)
Quarter: 2025Q3

REPORT INFORMATION
  Report Type: Other
  Country: EU (occurrence: EU)
  Receive Date: 20250709
  Receipt Date: 20250709
  Transmission Date: 20251021
  Serious: Yes (Hospitalization)
  Sender: ZYDUS PHARM
  Company Number: None

PATIENT

DRUGS (3)
  1. SIMVASTATIN [Suspect]
     Active Substance: SIMVASTATIN
     Indication: Dyslipidaemia
     Route: 048
     Dates: start: 20120101, end: 20130311
  2. SIMVASTATIN [Suspect]
     Active Substance: SIMVASTATIN
     Route: 048
     Dates: start: 20150526, end: 20170531
  3. SIMVASTATIN [Suspect]
     Active Substance: SIMVASTATIN
     Route: 048
     Dates: start: 20191211, end: 20220215

REACTIONS (1)
  - Idiopathic pulmonary fibrosis [Not Recovered/Not Resolved]

NARRATIVE: CASE EVENT DATE: 20211221
